FAERS Safety Report 12293542 (Version 2)
Quarter: 2016Q2

REPORT INFORMATION
  Report Type: Spontaneous
  Country: FR (occurrence: FR)
  Receive Date: 20160421
  Receipt Date: 20160505
  Transmission Date: 20160815
  Serious: Yes (Hospitalization)
  Sender: FDA-Public Use
  Company Number: FR-PFIZER INC-2016214907

PATIENT
  Age: 77 Year
  Sex: Male

DRUGS (12)
  1. JOSIR [Suspect]
     Active Substance: TAMSULOSIN
     Dosage: 0.4 MG, 1X/DAY
     Route: 048
     Dates: start: 2013, end: 20160331
  2. DESLORATADINE. [Suspect]
     Active Substance: DESLORATADINE
     Dosage: 1 DF, 1X/DAY
     Route: 048
     Dates: start: 2014, end: 20160331
  3. PRIVIGEN [Suspect]
     Active Substance: HUMAN IMMUNOGLOBULIN G
     Indication: IMMUNODEFICIENCY
     Dosage: 40 G, CYCLIC
     Route: 042
     Dates: start: 20160303, end: 20160303
  4. PRIVIGEN [Suspect]
     Active Substance: HUMAN IMMUNOGLOBULIN G
     Dosage: 40 G, CYCLIC
     Route: 042
     Dates: start: 20160331, end: 20160331
  5. ZYDELIG [Suspect]
     Active Substance: IDELALISIB
     Dosage: 150 MG, 1X/DAY
     Route: 048
     Dates: end: 20160321
  6. SPASFON /00765801/ [Suspect]
     Active Substance: PHLOROGLUCINOL\1,3,5-TRIMETHOXYBENZENE
     Dosage: 2 DF, 1X/DAY
     Route: 048
     Dates: start: 2013, end: 20160331
  7. LOPERAMIDE [Suspect]
     Active Substance: LOPERAMIDE
     Dosage: 1 DF, 1X/DAY
     Route: 048
     Dates: start: 2014, end: 20160331
  8. ERGYPHILUS CONFORT [Suspect]
     Active Substance: DIETARY SUPPLEMENT
     Dosage: 2 DF, 2X/DAY
     Route: 048
     Dates: start: 201509, end: 20160331
  9. ZITHROMAX [Suspect]
     Active Substance: AZITHROMYCIN DIHYDRATE
     Indication: ANTIBIOTIC PROPHYLAXIS
     Dosage: 250 MG, 3 X/WEEK
     Route: 048
     Dates: start: 201510, end: 20160316
  10. NEO-CODION /00012606/ [Suspect]
     Active Substance: CODEINE
     Indication: BRONCHITIS CHRONIC
     Dosage: 15 ML, 1X/DAY
     Route: 048
     Dates: start: 20150101, end: 20160331
  11. ZYDELIG [Suspect]
     Active Substance: IDELALISIB
     Indication: CHRONIC LYMPHOCYTIC LEUKAEMIA
     Dosage: 300 MG, 1X/DAY
     Route: 048
     Dates: start: 201412
  12. AVODART [Suspect]
     Active Substance: DUTASTERIDE
     Dosage: 0.5 MG, 1X/DAY
     Route: 048
     Dates: start: 2013, end: 20160331

REACTIONS (5)
  - Hepatic function abnormal [Unknown]
  - Oedema [Recovering/Resolving]
  - Dermatitis exfoliative [Recovering/Resolving]
  - Skin exfoliation [Recovering/Resolving]
  - Eosinophilia [Unknown]

NARRATIVE: CASE EVENT DATE: 201511
